FAERS Safety Report 10602734 (Version 6)
Quarter: 2015Q1

REPORT INFORMATION
  Report Type: Report from Study
  Country: JP (occurrence: JP)
  Receive Date: 20141124
  Receipt Date: 20150127
  Transmission Date: 20150720
  Serious: Yes (Death, Hospitalization)
  Sender: FDA-Public Use
  Company Number: JP-SA-2014SA145753

PATIENT
  Age: 67 Year
  Sex: Male

DRUGS (12)
  1. CORTICOSTEROID NOS [Concomitant]
     Active Substance: CORTICOSTEROID NOS
     Indication: PROSTATE CANCER
  2. PREDONINE [Concomitant]
     Active Substance: PREDNISOLONE\PREDNISOLONE ACETATE\PREDNISOLONE SODIUM SUCCINATE
     Indication: PROSTATE CANCER
     Route: 048
     Dates: start: 20140902, end: 20141020
  3. POLARAMINE [Concomitant]
     Active Substance: DEXCHLORPHENIRAMINE MALEATE
     Indication: PREMEDICATION
     Dosage: EVERY JEVTANA?ADMINISTRATION
     Route: 042
     Dates: start: 20140917, end: 20141015
  4. GRANISETRON [Concomitant]
     Active Substance: GRANISETRON
     Indication: PREMEDICATION
     Route: 042
     Dates: start: 20140917, end: 20141015
  5. NEUTROGIN [Concomitant]
     Active Substance: LENOGRASTIM
     Indication: PROPHYLAXIS
     Route: 058
     Dates: start: 20140922, end: 20140922
  6. JEVTANA [Suspect]
     Active Substance: CABAZITAXEL
     Indication: PROSTATE CANCER
     Route: 042
     Dates: start: 20140917, end: 20141015
  7. ALL OTHER THERAPEUTIC PRODUCTS [Concomitant]
     Active Substance: UNSPECIFIED INGREDIENT
     Indication: PROSTATE CANCER
  8. NEUTROGIN [Concomitant]
     Active Substance: LENOGRASTIM
     Indication: PROPHYLAXIS
     Route: 058
     Dates: start: 20141020, end: 20141021
  9. G-CSF [Concomitant]
     Active Substance: GRANULOCYTE COLONY-STIMULATING FACTOR NOS
     Indication: PROPHYLAXIS
     Dates: start: 20140922
  10. DEXART [Concomitant]
     Active Substance: DEXAMETHASONE SODIUM PHOSPHATE
     Indication: PREMEDICATION
     Route: 042
     Dates: start: 20140917, end: 20141015
  11. MORPHINE [Concomitant]
     Active Substance: MORPHINE
     Dates: start: 20141022
  12. RANITIDINE [Concomitant]
     Active Substance: RANITIDINE\RANITIDINE HYDROCHLORIDE
     Indication: PREMEDICATION
     Route: 042
     Dates: start: 20140917, end: 20141015

REACTIONS (14)
  - Lobar pneumonia [Fatal]
  - Malaise [Fatal]
  - Febrile neutropenia [Fatal]
  - Aspiration [None]
  - Cholelithiasis [None]
  - Cough [Fatal]
  - Cardiac arrest [None]
  - Productive cough [Fatal]
  - Renal cyst [None]
  - Pyrexia [Fatal]
  - Respiratory arrest [None]
  - Interstitial lung disease [Fatal]
  - Dyspnoea [Fatal]
  - Metastases to liver [None]

NARRATIVE: CASE EVENT DATE: 20141020
